FAERS Safety Report 6545654-9 (Version None)
Quarter: 2010Q1

REPORT INFORMATION
  Report Type: 
  Country: None (occurrence: None)
  Receive Date: 20100121
  Receipt Date: 20100111
  Transmission Date: 20100710
  Serious: Yes (Other)
  Sender: FDA-Public Use
  Company Number: PHEH2009US11712

PATIENT
  Sex: Female

DRUGS (9)
  1. EXELON [Suspect]
     Indication: DEMENTIA
     Dosage: UNK
     Route: 062
     Dates: start: 20090903
  2. PLAVIX [Concomitant]
     Dosage: 75 MG, QD
     Route: 048
  3. COZAAR [Concomitant]
  4. CALCIUM [Concomitant]
  5. VITAMIN E [Concomitant]
  6. LOVAZA [Concomitant]
  7. PRAVASTATIN [Concomitant]
  8. JANUVIA [Concomitant]
  9. ARANESP [Concomitant]
     Dosage: UNK

REACTIONS (10)
  - BALANCE DISORDER [None]
  - BLOOD CREATININE INCREASED [None]
  - CONDITION AGGRAVATED [None]
  - EAR PAIN [None]
  - FALL [None]
  - GAIT DISTURBANCE [None]
  - HEADACHE [None]
  - INJURY [None]
  - MALAISE [None]
  - PAIN [None]
